FAERS Safety Report 8088799-7 (Version None)
Quarter: 2012Q1

REPORT INFORMATION
  Report Type: 
  Country: None (occurrence: None)
  Receive Date: 20120128
  Receipt Date: 20110426
  Transmission Date: 20120608
  Serious: No
  Sender: FDA-Public Use
  Company Number: US-ABBOTT-11P-163-0722821-00

PATIENT
  Sex: Female
  Weight: 49.94 kg

DRUGS (9)
  1. ACTONEL [Concomitant]
     Indication: BONE DISORDER
  2. SPIRIVA [Concomitant]
     Indication: DYSPNOEA
  3. GABAPENTIN [Concomitant]
     Indication: FIBROMYALGIA
  4. ZYRTEC [Concomitant]
     Indication: HYPERSENSITIVITY
  5. GABAPENTIN [Concomitant]
     Indication: NEUROPATHY PERIPHERAL
  6. FOLIC ACID [Concomitant]
     Indication: RHEUMATOID ARTHRITIS
  7. HUMIRA [Suspect]
     Indication: RHEUMATOID ARTHRITIS
     Dates: start: 20040101
  8. WOBENZYM [Concomitant]
     Indication: MYALGIA
  9. FAMOTIDINE [Concomitant]
     Indication: GASTROOESOPHAGEAL REFLUX DISEASE

REACTIONS (2)
  - MUSCULOSKELETAL STIFFNESS [None]
  - JOINT STIFFNESS [None]
